FAERS Safety Report 13236777 (Version 1)
Quarter: 2017Q1

REPORT INFORMATION
  Report Type: Spontaneous
  Country: PK (occurrence: PK)
  Receive Date: 20170215
  Receipt Date: 20170215
  Transmission Date: 20170428
  Serious: Yes (Hospitalization)
  Sender: FDA-Public Use
  Company Number: PK-FRESENIUS KABI-FK201701268

PATIENT
  Age: 56 Year
  Sex: Male

DRUGS (1)
  1. MANNITOL (MANUFACTURER UNKNOWN) (MANNITOL) (MANNITOL) [Suspect]
     Active Substance: MANNITOL
     Indication: BRAIN OEDEMA
     Route: 042

REACTIONS (2)
  - Acute kidney injury [Recovered/Resolved]
  - Nephrotic syndrome [Recovered/Resolved]
